FAERS Safety Report 9491175 (Version 1)
Quarter: 2013Q3

REPORT INFORMATION
  Report Type: Spontaneous
  Country: IT (occurrence: IT)
  Receive Date: 20130830
  Receipt Date: 20130830
  Transmission Date: 20140515
  Serious: Yes (Other)
  Sender: FDA-Public Use
  Company Number: IT-PERRIGO-13IT008685

PATIENT
  Age: 13 Year
  Sex: Male

DRUGS (2)
  1. DESLORATADINE 5MG 621 [Suspect]
     Indication: RHINITIS ALLERGIC
     Dosage: 5 MG, QD
     Route: 065
  2. VALPROIC ACID [Concomitant]
     Indication: GRAND MAL CONVULSION
     Dosage: 25 MG/KG/DAY
     Route: 065

REACTIONS (1)
  - Grand mal convulsion [Recovered/Resolved]
